FAERS Safety Report 8448855-8 (Version None)
Quarter: 2012Q2

REPORT INFORMATION
  Report Type: 
  Country: None (occurrence: None)
  Receive Date: 20120613
  Receipt Date: 20120531
  Transmission Date: 20120825
  Serious: Yes (Other)
  Sender: FDA-Public Use
  Company Number: 217712

PATIENT
  Age: 71 Year
  Sex: Female

DRUGS (8)
  1. IBUPROFEN ^ORIFARM^ [Concomitant]
  2. ACETAMINOPHEN [Concomitant]
  3. LITHIUM CITRATE [Concomitant]
  4. CLONAZEPAM [Concomitant]
  5. PROPRANOLOL [Concomitant]
  6. SERTRALIN ^ACTAVIS^ (SERTRALINE) [Concomitant]
  7. INNOHEP [Suspect]
     Indication: THROMBOSIS PROPHYLAXIS
     Dosage: DOSE: 3500 IE DAILY, STRENGTH: 10.000 ANTI-XA IE/ML, SUBCUTANEOUS
     Route: 058
     Dates: start: 20120504
  8. LAMOTRIGINE [Concomitant]

REACTIONS (3)
  - PULMONARY EMBOLISM [None]
  - DRUG INEFFECTIVE [None]
  - PRODUCT QUALITY ISSUE [None]
